FAERS Safety Report 16319884 (Version 1)
Quarter: 2019Q2

REPORT INFORMATION
  Report Type: Report from Study
  Country: IT (occurrence: IT)
  Receive Date: 20190516
  Receipt Date: 20190516
  Transmission Date: 20190711
  Serious: Yes (Other)
  Sender: FDA-Public Use
  Company Number: IT-ROCHE-2315631

PATIENT

DRUGS (5)
  1. TEMOZOLOMIDE. [Suspect]
     Active Substance: TEMOZOLOMIDE
     Indication: MALIGNANT GLIOMA
     Route: 065
  2. BEVACIZUMAB. [Suspect]
     Active Substance: BEVACIZUMAB
     Indication: MALIGNANT GLIOMA
     Dosage: EVERY 15 OR 21 DAYS
     Route: 065
  3. FOTEMUSTINE [Suspect]
     Active Substance: FOTEMUSTINE
     Indication: MALIGNANT GLIOMA
     Route: 065
  4. LOMUSTINE. [Suspect]
     Active Substance: LOMUSTINE
     Indication: MALIGNANT GLIOMA
     Route: 065
  5. IRINOTECAN [Suspect]
     Active Substance: IRINOTECAN
     Indication: MALIGNANT GLIOMA
     Route: 065

REACTIONS (7)
  - Hypertension [Unknown]
  - Haematotoxicity [Unknown]
  - Haemorrhage intracranial [Unknown]
  - Skin ulcer [Unknown]
  - Pulmonary embolism [Unknown]
  - Proteinuria [Unknown]
  - Gastrointestinal perforation [Unknown]
